FAERS Safety Report 26202741 (Version 1)
Quarter: 2025Q4

REPORT INFORMATION
  Report Type: Spontaneous
  Country: GB (occurrence: GB)
  Receive Date: 20251226
  Receipt Date: 20251226
  Transmission Date: 20260117
  Serious: Yes (Other)
  Sender: ALEXION PHARMACEUTICALS
  Company Number: None

PATIENT

DRUGS (2)
  1. TEZEPELUMAB [Suspect]
     Active Substance: TEZEPELUMAB
     Indication: Adverse drug reaction
     Dosage: UNK
     Route: 065
  2. TEZEPELUMAB [Suspect]
     Active Substance: TEZEPELUMAB

REACTIONS (6)
  - Hallucination [Recovered/Resolved]
  - Arthralgia [Recovered/Resolved]
  - Conjunctivitis [Recovered/Resolved]
  - Insomnia [Recovered/Resolved]
  - Blepharitis [Recovered/Resolved]
  - Chalazion [Recovering/Resolving]
